FAERS Safety Report 11747581 (Version 10)
Quarter: 2018Q1

REPORT INFORMATION
  Report Type: Spontaneous
  Country: US (occurrence: US)
  Receive Date: 20151117
  Receipt Date: 20180202
  Transmission Date: 20180508
  Serious: No
  Sender: FDA-Public Use
  Company Number: US-PFIZER INC-2015391869

PATIENT
  Age: 61 Year
  Sex: Male
  Weight: 74.84 kg

DRUGS (13)
  1. DEPO-TESTOSTERONE [Suspect]
     Active Substance: TESTOSTERONE CYPIONATE
     Dosage: UNK, (0.75-1ML EVERY 7-10 DAYS)
  2. LIOTHYRONINE [Concomitant]
     Active Substance: LIOTHYRONINE
     Indication: TRI-IODOTHYRONINE UPTAKE
     Dosage: UNK
  3. ADVAIR HFA [Concomitant]
     Active Substance: FLUTICASONE PROPIONATE\SALMETEROL XINAFOATE
     Dosage: UNK
  4. SYNTHROID [Concomitant]
     Active Substance: LEVOTHYROXINE SODIUM
     Dosage: UNK
     Dates: start: 1997
  5. CLONAZEPAM. [Concomitant]
     Active Substance: CLONAZEPAM
     Dosage: UNK
  6. DEPO-TESTOSTERONE [Suspect]
     Active Substance: TESTOSTERONE CYPIONATE
     Indication: BLOOD TESTOSTERONE DECREASED
     Dosage: 0.75 ML, WEEKLY
     Route: 030
  7. OXYGEN. [Concomitant]
     Active Substance: OXYGEN
     Dosage: 2L PER HOUR OF NIGHT TIME
  8. LIDODERM [Concomitant]
     Active Substance: LIDOCAINE
     Indication: PAIN
     Dosage: UNK
  9. LEVOTHYROXINE. [Concomitant]
     Active Substance: LEVOTHYROXINE
     Dosage: UNK
  10. NASONEX [Concomitant]
     Active Substance: MOMETASONE FUROATE
     Dosage: UNK
  11. BELSOMRA [Concomitant]
     Active Substance: SUVOREXANT
     Indication: SLEEP DISORDER
     Dosage: UNK
  12. WELLBUTRIN SR [Concomitant]
     Active Substance: BUPROPION HYDROCHLORIDE
     Dosage: UNK
  13. BAUSCH+LOMB NASAL [Concomitant]
     Dosage: UNK
     Route: 045

REACTIONS (15)
  - Drug ineffective [Unknown]
  - Drug dose omission [Unknown]
  - Headache [Unknown]
  - Pyrexia [Unknown]
  - Product deposit [Unknown]
  - Testicular atrophy [Unknown]
  - Influenza like illness [Unknown]
  - Diarrhoea [Unknown]
  - Blood cholesterol increased [Unknown]
  - Poor quality drug administered [Unknown]
  - Arthralgia [Unknown]
  - Weight decreased [Unknown]
  - Muscle mass [Unknown]
  - Myalgia [Unknown]
  - Drug tolerance [Unknown]

NARRATIVE: CASE EVENT DATE: 201510
